FAERS Safety Report 9948583 (Version 1)
Quarter: 2014Q1

REPORT INFORMATION
  Report Type: Spontaneous
  Country: US (occurrence: US)
  Receive Date: 20140303
  Receipt Date: 20140303
  Transmission Date: 20141002
  Serious: Yes (Death)
  Sender: FDA-Public Use
  Company Number: US-ROCHE-1357711

PATIENT
  Sex: Female

DRUGS (2)
  1. XELODA [Suspect]
     Indication: BREAST CANCER
     Dosage: 4 TABS TWICE IN A DAY, 14 DAYS ON 7 DAYS OFF
     Route: 048
     Dates: start: 20140207, end: 20140222
  2. XELODA [Suspect]
     Indication: METASTASIS

REACTIONS (1)
  - Death [Fatal]
